FAERS Safety Report 15009069 (Version 1)
Quarter: 2018Q2

REPORT INFORMATION
  Report Type: Other
  Country: US (occurrence: US)
  Receive Date: 20180614
  Receipt Date: 20180614
  Transmission Date: 20180711
  Serious: Yes (Other)
  Sender: FDA-Public Use
  Company Number: US-MERCK KGAA-2049379

PATIENT
  Age: 89 Year
  Sex: Female

DRUGS (6)
  1. FLUTICASONE. [Concomitant]
     Active Substance: FLUTICASONE
  2. OMEPRAZOLE. [Concomitant]
     Active Substance: OMEPRAZOLE
  3. NOVOTHYROX [Suspect]
     Active Substance: LEVOTHYROXINE SODIUM
     Indication: PRODUCT USED FOR UNKNOWN INDICATION
  4. DIGOXIN. [Concomitant]
     Active Substance: DIGOXIN
  5. OXYCODONE [Suspect]
     Active Substance: OXYCODONE
  6. DILTIAZEM. [Concomitant]
     Active Substance: DILTIAZEM

REACTIONS (4)
  - Sedation [Recovering/Resolving]
  - Respiratory depression [None]
  - Abdominal pain [Recovering/Resolving]
  - Confusional state [Recovering/Resolving]
